FAERS Safety Report 9138351 (Version 2)
Quarter: 2013Q1

REPORT INFORMATION
  Report Type: Spontaneous
  Country: US (occurrence: US)
  Receive Date: 20130305
  Receipt Date: 20130319
  Transmission Date: 20140127
  Serious: Yes (Other)
  Sender: FDA-Public Use
  Company Number: US-BIOGENIDEC-2013BI019319

PATIENT
  Age: 34 Year
  Sex: Female

DRUGS (1)
  1. AVONEX [Suspect]
     Indication: MULTIPLE SCLEROSIS
     Route: 030

REACTIONS (21)
  - Brain oedema [Unknown]
  - Cough [Not Recovered/Not Resolved]
  - Euphoric mood [Not Recovered/Not Resolved]
  - Central nervous system lesion [Unknown]
  - Spinal disorder [Unknown]
  - Mobility decreased [Not Recovered/Not Resolved]
  - Gait disturbance [Not Recovered/Not Resolved]
  - Weight decreased [Unknown]
  - Burning sensation [Unknown]
  - Tremor [Unknown]
  - Hypoaesthesia [Not Recovered/Not Resolved]
  - Muscle strain [Unknown]
  - Nerve injury [Not Recovered/Not Resolved]
  - Blister [Unknown]
  - Sensory loss [Unknown]
  - Thermoanaesthesia [Unknown]
  - Influenza like illness [Recovered/Resolved]
  - Multiple sclerosis relapse [Not Recovered/Not Resolved]
  - Malaise [Unknown]
  - Decreased appetite [Unknown]
  - Pain [Unknown]
